FAERS Safety Report 21308637 (Version 11)
Quarter: 2023Q4

REPORT INFORMATION
  Report Type: Spontaneous
  Country: US (occurrence: US)
  Receive Date: 20220908
  Receipt Date: 20231110
  Transmission Date: 20240110
  Serious: Yes (Other)
  Sender: FDA-Public Use
  Company Number: US-PFIZER INC-PV202200058653

PATIENT
  Age: 70 Year
  Sex: Female

DRUGS (4)
  1. IBRANCE [Suspect]
     Active Substance: PALBOCICLIB
     Indication: Breast cancer female
     Dosage: 125 MG
  2. IBRANCE [Suspect]
     Active Substance: PALBOCICLIB
     Dosage: 100 MG
  3. IBRANCE [Suspect]
     Active Substance: PALBOCICLIB
     Dosage: 150 MG
  4. IBRANCE [Suspect]
     Active Substance: PALBOCICLIB
     Dosage: 75 MG
     Dates: start: 20230801

REACTIONS (12)
  - Neuropathy peripheral [Unknown]
  - Cholecystectomy [Unknown]
  - Tooth extraction [Unknown]
  - Axillary web syndrome [Unknown]
  - Brain fog [Unknown]
  - Dizziness [Unknown]
  - Pain [Unknown]
  - White blood cell count decreased [Unknown]
  - Full blood count abnormal [Unknown]
  - Full blood count decreased [Unknown]
  - Infection [Unknown]
  - Nausea [Unknown]
